FAERS Safety Report 9583264 (Version 1)
Quarter: 2013Q4

REPORT INFORMATION
  Report Type: Spontaneous
  Country: US (occurrence: US)
  Receive Date: 20131002
  Receipt Date: 20131002
  Transmission Date: 20140711
  Serious: No
  Sender: FDA-Public Use
  Company Number: US-AMGEN-USASP2013046075

PATIENT
  Age: 71 Year
  Sex: Female
  Weight: 61.22 kg

DRUGS (8)
  1. ENBREL [Suspect]
     Indication: PRODUCT USED FOR UNKNOWN INDICATION
     Dosage: 50 MG, QWK
     Route: 058
  2. FOSAMAX [Concomitant]
     Dosage: 35 MG, UNK
  3. VOLTAREN                           /00372301/ [Concomitant]
     Dosage: 75 MG, UNK
  4. SOMA [Concomitant]
     Dosage: 250 MG, UNK
  5. TAMOXIFEN [Concomitant]
     Dosage: 10 MG, UNK
  6. LEVOTHYROXIN [Concomitant]
     Dosage: 200 MUG, UNK
  7. COQ [Concomitant]
     Dosage: 100 MG, UNK
  8. NORCO [Concomitant]
     Dosage: 7.5-325 UNK, UNK

REACTIONS (3)
  - Stress [Unknown]
  - Pain in extremity [Unknown]
  - Arthralgia [Unknown]
